FAERS Safety Report 21773104 (Version 2)
Quarter: 2023Q1

REPORT INFORMATION
  Report Type: Report from Study
  Country: GB (occurrence: GB)
  Receive Date: 20221223
  Receipt Date: 20230123
  Transmission Date: 20230417
  Serious: Yes (Other)
  Sender: FDA-Public Use
  Company Number: GB-SAMSUNG BIOEPIS-SB-2022-32534

PATIENT
  Sex: Female

DRUGS (2)
  1. IMRALDI [Suspect]
     Active Substance: ADALIMUMAB
     Indication: Ankylosing spondylitis
     Route: 058
     Dates: start: 202001
  2. PROPANOL (PROPRANOLOL HYDROCHLORIDE) [Concomitant]
     Active Substance: PROPRANOLOL HYDROCHLORIDE
     Indication: Panic attack
     Dosage: UNKNOWN, WHEN NEEDED
     Route: 065

REACTIONS (6)
  - Immunosuppression [Not Recovered/Not Resolved]
  - Ear infection [Unknown]
  - Infection [Unknown]
  - Back pain [Unknown]
  - Costochondritis [Unknown]
  - COVID-19 [Recovering/Resolving]
